FAERS Safety Report 7720931-4 (Version None)
Quarter: 2011Q3

REPORT INFORMATION
  Report Type: 
  Country: None (occurrence: None)
  Receive Date: 20110825
  Receipt Date: 20110812
  Transmission Date: 20111222
  Serious: Yes (Life-Threatening)
  Sender: FDA-Public Use
  Company Number: 15968258

PATIENT

DRUGS (4)
  1. WARFARIN SODIUM [Suspect]
     Indication: EMBOLISM
     Dosage: 4 MILLIGRAM 1 DAY ORAL
     Route: 048
     Dates: start: 20110809
  2. PLACEBO [Suspect]
     Indication: EMBOLISM
     Dates: start: 20110809
  3. APIXABAN [Suspect]
     Indication: EMBOLISM
     Dosage: 20 MILLIGRAM 1 DAY ORAL
     Route: 048
     Dates: start: 20110809
  4. ENOXAPARIN SODIUM [Suspect]
     Indication: EMBOLISM
     Dosage: 1 MILLILITER IV
     Route: 042
     Dates: start: 20110809

REACTIONS (1)
  - PANCREATIC CARCINOMA [None]
